FAERS Safety Report 7536959-3 (Version None)
Quarter: 2011Q2

REPORT INFORMATION
  Report Type: 
  Country: None (occurrence: None)
  Receive Date: 20110609
  Receipt Date: 20110603
  Transmission Date: 20111010
  Serious: Yes (Other)
  Sender: FDA-Public Use
  Company Number: GB-US-EMD SERONO, INC.-7063120

PATIENT
  Sex: Female

DRUGS (2)
  1. REBIF [Suspect]
     Dates: start: 20110101
  2. REBIF [Suspect]
     Indication: PRODUCT USED FOR UNKNOWN INDICATION
     Dates: start: 20100910

REACTIONS (4)
  - WHITE BLOOD CELL COUNT DECREASED [None]
  - GAMMA-GLUTAMYLTRANSFERASE INCREASED [None]
  - BLOOD COUNT ABNORMAL [None]
  - NEUTROPHIL COUNT DECREASED [None]
